FAERS Safety Report 7469788-X (Version None)
Quarter: 2011Q2

REPORT INFORMATION
  Report Type: 
  Country: None (occurrence: None)
  Receive Date: 20110510
  Receipt Date: 20110506
  Transmission Date: 20111010
  Serious: Yes (Other)
  Sender: FDA-Public Use
  Company Number: US-PFIZER INC-2006106075

PATIENT
  Sex: Female
  Weight: 75.737 kg

DRUGS (9)
  1. VALIUM [Concomitant]
     Dosage: 2 MG, AS NEEDED
  2. VITAMIN D [Concomitant]
     Dosage: UNK
  3. SERTRALINE HYDROCHLORIDE [Suspect]
     Indication: DEPRESSION
     Dosage: 1 DAILY
     Route: 048
     Dates: end: 20080601
  4. ZOLOFT [Suspect]
     Indication: DEPRESSION
     Dosage: 50 MG, 1X/DAY
     Route: 048
     Dates: start: 19940101
  5. DIAZEPAM [Concomitant]
     Dosage: 5 MG, AS NEEDED
  6. DIOVAN [Concomitant]
     Indication: HYPERTENSION
     Dosage: 80 MG, 1X/DAY
  7. ASPIRIN [Concomitant]
     Dosage: UNK
  8. LIPITOR [Concomitant]
     Indication: BLOOD CHOLESTEROL INCREASED
     Dosage: 10 MG, 1X/DAY
  9. LEVOXYL [Concomitant]
     Indication: THYROID DISORDER
     Dosage: 50 UG, UNK

REACTIONS (3)
  - FEELING ABNORMAL [None]
  - HEAD DISCOMFORT [None]
  - HEADACHE [None]
